FAERS Safety Report 6262256-2 (Version None)
Quarter: 2009Q3

REPORT INFORMATION
  Report Type: 
  Country: None (occurrence: None)
  Receive Date: 20090709
  Receipt Date: 20090706
  Transmission Date: 20100115
  Serious: Yes (Hospitalization, Other)
  Sender: FDA-Public Use
  Company Number: US-TEVA-200871USA

PATIENT
  Age: 66 Year
  Sex: Female

DRUGS (1)
  1. GLIPIZIDE TABLETS USP, 5MG AND 10MG [Suspect]

REACTIONS (1)
  - LEUKOCYTOCLASTIC VASCULITIS [None]
